FAERS Safety Report 21047259 (Version 1)
Quarter: 2022Q3

REPORT INFORMATION
  Report Type: Spontaneous
  Country: US (occurrence: US)
  Receive Date: 20220706
  Receipt Date: 20220706
  Transmission Date: 20221026
  Serious: No
  Sender: FDA-Public Use
  Company Number: US-PFIZER INC-PV202200012285

PATIENT

DRUGS (1)
  1. TIKOSYN [Suspect]
     Active Substance: DOFETILIDE
     Indication: Cardiac failure congestive
     Dosage: UNK

REACTIONS (4)
  - Off label use [Unknown]
  - Hypoacusis [Unknown]
  - Dysgraphia [Unknown]
  - Thinking abnormal [Unknown]
